FAERS Safety Report 4741539-9 (Version None)
Quarter: 2005Q3

REPORT INFORMATION
  Report Type: 
  Country: None (occurrence: None)
  Receive Date: 20050810
  Receipt Date: 20050727
  Transmission Date: 20060218
  Serious: Yes (Death, Life-Threatening, Hospitalization, Other)
  Sender: FDA-Public Use
  Company Number: BR-GILEAD-2005-0008576

PATIENT
  Sex: Female
  Weight: 42 kg

DRUGS (27)
  1. TENOFOVIR DISOPROXIL FUMARATE [Suspect]
     Indication: HIV TEST POSITIVE
     Route: 048
     Dates: start: 20031029, end: 20050103
  2. CAPRAVIRINE [Suspect]
     Indication: HIV TEST POSITIVE
     Route: 048
     Dates: start: 20041004, end: 20050103
  3. LAMIVUDINE [Suspect]
     Indication: HIV TEST POSITIVE
     Route: 048
     Dates: start: 20031020, end: 20050103
  4. DIDANOSINE [Suspect]
     Indication: HIV TEST POSITIVE
     Route: 048
     Dates: start: 20031029, end: 20050103
  5. KALETRA [Suspect]
     Indication: HIV TEST POSITIVE
     Route: 048
     Dates: start: 20041004, end: 20050103
  6. KALETRA [Suspect]
     Route: 048
     Dates: start: 20031029, end: 20041003
  7. THEOPHYLLINE [Concomitant]
     Route: 048
     Dates: start: 20031119, end: 20050103
  8. VITAMINS [Concomitant]
     Route: 048
     Dates: start: 20040127, end: 20050103
  9. METFORMIN [Concomitant]
     Route: 048
     Dates: start: 20041129
  10. LOPERAMIDE HCL [Concomitant]
     Route: 048
     Dates: start: 20040112, end: 20050103
  11. BACTRIM [Concomitant]
     Indication: INFECTION PROPHYLAXIS
     Route: 048
     Dates: start: 19990101, end: 20050111
  12. BACTRIM [Concomitant]
     Route: 042
     Dates: start: 20050103, end: 20050103
  13. PREDNISONE [Concomitant]
     Dates: start: 20040419
  14. SODIUM CHLORIDE [Concomitant]
  15. METAMIZOLE SODIUM [Concomitant]
     Route: 042
     Dates: start: 20050103, end: 20050120
  16. METAMIZOLE SODIUM [Concomitant]
     Route: 048
     Dates: start: 20050117
  17. POTASSIUM CHLORIDE [Concomitant]
     Dates: start: 20050108, end: 20050108
  18. GLUCOSE [Concomitant]
     Dates: start: 20050114, end: 20050114
  19. GLUCOSE [Concomitant]
     Dates: start: 20050108, end: 20050108
  20. HYDROCHLOROTHIAZIDE [Concomitant]
     Dates: start: 20050108, end: 20050108
  21. DIMETICONE [Concomitant]
     Route: 048
     Dates: start: 20050109, end: 20050111
  22. CAPTOPRIL [Concomitant]
     Route: 048
     Dates: start: 20050113, end: 20050116
  23. PIRIMETAMINE [Concomitant]
     Route: 048
     Dates: start: 20050112, end: 20050115
  24. ALBUTEROL SULFATE HFA [Concomitant]
     Indication: ASTHMA
     Dates: start: 20040501, end: 20050103
  25. BUDENOSIDE/FORMOTEROL FUMARATE [Concomitant]
     Dates: start: 20030101, end: 20050103
  26. DAPSONE [Concomitant]
     Route: 048
     Dates: start: 20050112, end: 20050120
  27. HEPARIN [Concomitant]
     Route: 042
     Dates: start: 20050111, end: 20050113

REACTIONS (21)
  - ANAEMIA [None]
  - APHASIA [None]
  - ASCITES [None]
  - ASTHENIA [None]
  - CATHETER SITE INFECTION [None]
  - DISORIENTATION [None]
  - HAEMATURIA [None]
  - HEPATOMEGALY [None]
  - HEPATORENAL SYNDROME [None]
  - HYPERSENSITIVITY [None]
  - METABOLIC ACIDOSIS [None]
  - NAUSEA [None]
  - PARESIS [None]
  - PNEUMOCYSTIS JIROVECI PNEUMONIA [None]
  - PYREXIA [None]
  - RENAL DISORDER [None]
  - RENAL FAILURE [None]
  - SEPSIS [None]
  - TUBULOINTERSTITIAL NEPHRITIS [None]
  - VOMITING [None]
  - WEIGHT DECREASED [None]
